FAERS Safety Report 4732435-1 (Version None)
Quarter: 2005Q3

REPORT INFORMATION
  Report Type: 
  Country: None (occurrence: None)
  Receive Date: 20050801
  Receipt Date: 20050720
  Transmission Date: 20060218
  Serious: Yes (Other)
  Sender: FDA-Public Use
  Company Number: 2005103722

PATIENT
  Age: 80 Year
  Sex: Female

DRUGS (3)
  1. NORVASC [Suspect]
     Indication: HYPERTENSION
     Dates: start: 20050701
  2. ZELNORM [Suspect]
     Indication: IRRITABLE BOWEL SYNDROME
  3. TYLENOL [Suspect]
     Indication: ILL-DEFINED DISORDER

REACTIONS (3)
  - BLINDNESS TRANSIENT [None]
  - HYPERTENSION [None]
  - OCULAR HYPERAEMIA [None]
